FAERS Safety Report 6547968-5 (Version None)
Quarter: 2010Q1

REPORT INFORMATION
  Report Type: 
  Country: None (occurrence: None)
  Receive Date: 20100124
  Receipt Date: 20091206
  Transmission Date: 20100710
  Serious: Yes (Hospitalization)
  Sender: FDA-Public Use
  Company Number: AU-ALEXION-A200901047

PATIENT
  Sex: Female

DRUGS (11)
  1. SOLIRIS [Suspect]
     Indication: RENAL TRANSPLANT
     Dosage: 600 TO 1200 MG, UNK
     Route: 042
     Dates: start: 20090910
  2. ATORVASTATIN CALCIUM [Concomitant]
  3. OMEPRAZOLE [Concomitant]
  4. VALPROATE SODIUM [Concomitant]
  5. TELMISARTAN [Concomitant]
  6. PREDNISOLONE [Concomitant]
  7. BACTRIM [Concomitant]
  8. BASILIXIMAB [Concomitant]
     Dosage: ON INDUCTION
  9. METOPROLOL TARTRATE [Concomitant]
     Dosage: 25 MG, BID
  10. MYCOPHENOLATE MOFETIL [Concomitant]
  11. TACROLIMUS [Concomitant]

REACTIONS (1)
  - ARTERIOVENOUS FISTULA SITE HAEMORRHAGE [None]
